FAERS Safety Report 5964030-0 (Version None)
Quarter: 2008Q4

REPORT INFORMATION
  Report Type: 
  Country: None (occurrence: None)
  Receive Date: 20081124
  Receipt Date: 20081114
  Transmission Date: 20090506
  Serious: Yes (Hospitalization, Other)
  Sender: FDA-Public Use
  Company Number: US-PURDUE-USA_2008_0035313

PATIENT
  Age: 54 Year
  Sex: Female

DRUGS (4)
  1. OXYCONTIN [Suspect]
     Indication: BACK PAIN
     Dosage: 20 MG, BID
     Dates: end: 20080901
  2. CORTICOSTEROIDS [Concomitant]
     Indication: BACK PAIN
     Route: 008
  3. OXYCODONE HYDROCHLORIDE W/PARACETAMOL [Concomitant]
     Indication: PAIN
     Dosage: UNK, SEE TEXT
     Dates: start: 20080901
  4. GABAPENTIN [Concomitant]

REACTIONS (5)
  - BACK PAIN [None]
  - CARDIAC DISCOMFORT [None]
  - CHEST PAIN [None]
  - DRUG DEPENDENCE [None]
  - DRUG WITHDRAWAL SYNDROME [None]
